FAERS Safety Report 7026937-5 (Version None)
Quarter: 2010Q4

REPORT INFORMATION
  Report Type: 
  Country: None (occurrence: None)
  Receive Date: 20101004
  Receipt Date: 20100927
  Transmission Date: 20110411
  Serious: Yes (Hospitalization)
  Sender: FDA-Public Use
  Company Number: B0677228A

PATIENT
  Sex: Female
  Weight: 45 kg

DRUGS (31)
  1. ALKERAN [Suspect]
     Indication: STEM CELL TRANSPLANT
     Dosage: 200MG PER DAY
     Route: 042
     Dates: start: 20100629, end: 20100629
  2. CYMERIN [Suspect]
     Indication: STEM CELL TRANSPLANT
     Dates: start: 20100624, end: 20100624
  3. CYLOCIDE [Suspect]
     Indication: STEM CELL TRANSPLANT
     Dosage: 560MG PER DAY
     Dates: start: 20100625, end: 20100628
  4. LASTET [Suspect]
     Indication: STEM CELL TRANSPLANT
     Route: 042
     Dates: start: 20100625, end: 20100628
  5. RITUXAN [Concomitant]
     Indication: STEM CELL TRANSPLANT
     Dates: start: 20100630, end: 20100630
  6. NEUTROGIN [Concomitant]
     Dates: start: 20100702, end: 20100712
  7. MEROPEN [Concomitant]
     Dosage: 3G PER DAY
     Route: 042
     Dates: start: 20100704, end: 20100713
  8. FUNGUARD [Concomitant]
     Route: 042
     Dates: start: 20100704, end: 20100713
  9. FUNGUARD [Concomitant]
     Route: 042
     Dates: start: 20100716, end: 20100728
  10. KLARICID [Concomitant]
     Dosage: 400MG PER DAY
     Route: 048
     Dates: start: 20100714, end: 20100716
  11. HABEKACIN [Concomitant]
     Dates: start: 20100716, end: 20100721
  12. DECADRON [Concomitant]
     Dates: start: 20100627, end: 20100630
  13. GASTER D [Concomitant]
     Dosage: 40MG PER DAY
     Route: 048
     Dates: start: 20100624
  14. FLUCONAL [Concomitant]
     Dosage: 200MG PER DAY
     Route: 048
     Dates: start: 20100624, end: 20100704
  15. BENET [Concomitant]
     Route: 048
     Dates: start: 20100624
  16. URSO 250 [Concomitant]
     Route: 048
     Dates: start: 20100624
  17. ASPIRIN [Concomitant]
     Route: 048
     Dates: start: 20100624, end: 20100805
  18. CALONAL [Concomitant]
     Dosage: 400MG PER DAY
     Route: 048
     Dates: start: 20100630, end: 20100630
  19. CALONAL [Concomitant]
     Dosage: 400MG PER DAY
     Route: 048
     Dates: start: 20100716, end: 20100716
  20. EMEND [Concomitant]
     Route: 048
     Dates: start: 20100629, end: 20100701
  21. PURSENNID [Concomitant]
     Route: 048
     Dates: start: 20100628, end: 20100628
  22. GASMOTIN [Concomitant]
     Route: 048
     Dates: start: 20100724
  23. UNKNOWN DRUG [Concomitant]
     Route: 048
     Dates: start: 20100724
  24. MARZULENE [Concomitant]
     Route: 048
     Dates: start: 20100715, end: 20100721
  25. BIO THREE [Concomitant]
     Route: 048
     Dates: start: 20100722
  26. POLARAMINE [Concomitant]
     Dosage: 1IUAX PER DAY
     Dates: start: 20100630, end: 20100630
  27. HOKUNALIN [Concomitant]
     Dosage: 1IUAX PER DAY
     Route: 062
     Dates: start: 20100714, end: 20100716
  28. UNKNOWN DRUG [Concomitant]
     Route: 048
     Dates: start: 20100714, end: 20100716
  29. BAKTAR [Concomitant]
     Route: 048
     Dates: start: 20100624, end: 20100625
  30. POSTERISAN [Concomitant]
     Route: 054
     Dates: start: 20100714
  31. HACHIAZULE [Concomitant]
     Route: 002
     Dates: start: 20100714

REACTIONS (2)
  - DECREASED APPETITE [None]
  - DIARRHOEA [None]
